FAERS Safety Report 12123076 (Version 1)
Quarter: 2016Q1

REPORT INFORMATION
  Report Type: Other
  Country: US (occurrence: US)
  Receive Date: 20160227
  Receipt Date: 20160227
  Transmission Date: 20160526
  Serious: No
  Sender: FDA-Public Use
  Company Number: US-ACORDA-ACO_117575_2015

PATIENT
  Age: 71 Year
  Sex: Male

DRUGS (3)
  1. AMPYRA [Suspect]
     Active Substance: DALFAMPRIDINE
     Dosage: OFF FOR 5 DAYS/ON FOR 5 DAYS
  2. AMPYRA [Suspect]
     Active Substance: DALFAMPRIDINE
     Indication: MULTIPLE SCLEROSIS
     Dosage: 10 MG, Q 12 HRS
     Route: 048
     Dates: start: 2015, end: 201509
  3. AMPYRA [Suspect]
     Active Substance: DALFAMPRIDINE
     Dosage: 10 MG TAB DAILY
     Dates: start: 2015

REACTIONS (5)
  - Drug ineffective [Unknown]
  - Therapy cessation [Unknown]
  - Bowel movement irregularity [Recovered/Resolved]
  - Inappropriate schedule of drug administration [Unknown]
  - Abdominal pain [Recovered/Resolved]

NARRATIVE: CASE EVENT DATE: 20151001
